FAERS Safety Report 21037866 (Version 1)
Quarter: 2022Q3

REPORT INFORMATION
  Report Type: Report from Study
  Country: BR (occurrence: BR)
  Receive Date: 20220704
  Receipt Date: 20220704
  Transmission Date: 20221026
  Serious: Yes (Other)
  Sender: FDA-Public Use
  Company Number: BR-AMGEN-BRASL2022057035

PATIENT
  Age: 90 Year
  Sex: Male

DRUGS (4)
  1. PROLIA [Suspect]
     Active Substance: DENOSUMAB
     Indication: Osteoporosis
     Dosage: 60 MILLIGRAM
     Route: 058
     Dates: start: 20220315
  2. PROLIA [Suspect]
     Active Substance: DENOSUMAB
     Indication: Osteonecrosis
  3. PROLIA [Suspect]
     Active Substance: DENOSUMAB
     Indication: Osteopenia
  4. DULOXETINE [Concomitant]
     Active Substance: DULOXETINE
     Dosage: UNK

REACTIONS (4)
  - Neuropathic arthropathy [Not Recovered/Not Resolved]
  - Pain in jaw [Not Recovered/Not Resolved]
  - Trismus [Not Recovered/Not Resolved]
  - Insomnia [Not Recovered/Not Resolved]

NARRATIVE: CASE EVENT DATE: 20220101
